FAERS Safety Report 8208850-0 (Version None)
Quarter: 2012Q1

REPORT INFORMATION
  Report Type: 
  Country: None (occurrence: None)
  Receive Date: 20120314
  Receipt Date: 20120307
  Transmission Date: 20120608
  Serious: Yes (Other)
  Sender: FDA-Public Use
  Company Number: US-PFIZER INC-2012062135

PATIENT
  Sex: Female
  Weight: 58.957 kg

DRUGS (1)
  1. PRISTIQ [Suspect]
     Indication: MAJOR DEPRESSION
     Dosage: 50 MG, DAILY
     Dates: start: 20100101, end: 20120229

REACTIONS (1)
  - SUICIDAL IDEATION [None]
